FAERS Safety Report 24700807 (Version 1)
Quarter: 2024Q4

REPORT INFORMATION
  Report Type: Spontaneous
  Country: US (occurrence: None)
  Receive Date: 20241204
  Receipt Date: 20241204
  Transmission Date: 20250115
  Serious: Yes (Death)
  Sender: Public
  Company Number: None

PATIENT
  Age: 86 Year
  Sex: Male

DRUGS (14)
  1. PIRFENIDONE [Suspect]
     Active Substance: PIRFENIDONE
     Indication: Interstitial lung disease
     Dosage: FREQUENCY : 3 TIMES A DAY;?
     Route: 048
     Dates: start: 20230227, end: 20231017
  2. ATORVASTATIN [Concomitant]
     Active Substance: ATORVASTATIN
  3. breyna HFA [Concomitant]
  4. MONTELUKAST [Concomitant]
     Active Substance: MONTELUKAST
  5. PREDNISONE [Concomitant]
     Active Substance: PREDNISONE
  6. SEPTRA SS [Concomitant]
  7. ATROVENT INHL SOLN [Concomitant]
  8. MIDODRINE [Concomitant]
     Active Substance: MIDODRINE
  9. FLOMAX [Concomitant]
     Active Substance: TAMSULOSIN HYDROCHLORIDE
  10. ALBUTEROL SULFATE [Concomitant]
     Active Substance: ALBUTEROL SULFATE
  11. PANTOPRAZOLE [Concomitant]
     Active Substance: PANTOPRAZOLE
  12. FLONASE [Concomitant]
     Active Substance: FLUTICASONE PROPIONATE
  13. CETIRIZINE [Concomitant]
     Active Substance: CETIRIZINE HYDROCHLORIDE
  14. VITAMINS [Concomitant]
     Active Substance: VITAMINS

REACTIONS (1)
  - Organising pneumonia [None]

NARRATIVE: CASE EVENT DATE: 20240214
